FAERS Safety Report 5159956-4 (Version None)
Quarter: 2006Q4

REPORT INFORMATION
  Report Type: 
  Country: None (occurrence: None)
  Receive Date: 20061117
  Receipt Date: 20061102
  Transmission Date: 20070319
  Serious: Yes (Death)
  Sender: FDA-Public Use
  Company Number: A-US2006-13431

PATIENT
  Age: 16 Year
  Sex: Female

DRUGS (1)
  1. TRACLEER [Suspect]
     Indication: PULMONARY HYPERTENSION
     Dosage: 15.6 MG, BID, ORAL
     Route: 048
     Dates: start: 20060926

REACTIONS (1)
  - PNEUMONIA VIRAL [None]
